FAERS Safety Report 13102529 (Version 1)
Quarter: 2017Q1

REPORT INFORMATION
  Report Type: Spontaneous
  Country: US (occurrence: US)
  Receive Date: 20170110
  Receipt Date: 20170110
  Transmission Date: 20170428
  Serious: Yes (Other)
  Sender: FDA-Public Use
  Company Number: US-MALLINCKRODT-T201605026

PATIENT
  Sex: Female
  Weight: 82 kg

DRUGS (1)
  1. H.P. ACTHAR [Suspect]
     Active Substance: CORTICOTROPIN
     Indication: RHEUMATOID ARTHRITIS
     Dosage: 80 UNITS/1ML  TWICE PER WEEK
     Route: 058
     Dates: start: 20160910

REACTIONS (22)
  - Sleep disorder [Unknown]
  - Arthralgia [Unknown]
  - Abdominal discomfort [Unknown]
  - Flank pain [Unknown]
  - Feeling abnormal [Unknown]
  - Abdominal distension [Unknown]
  - Arthropathy [Unknown]
  - Weight decreased [Unknown]
  - Tremor [Unknown]
  - Back pain [Unknown]
  - Abdominal pain [Unknown]
  - Gait disturbance [Unknown]
  - Dizziness [Unknown]
  - Decreased appetite [Unknown]
  - Mass [Unknown]
  - Energy increased [Unknown]
  - Liver disorder [Unknown]
  - Mobility decreased [Unknown]
  - Dyspnoea [Unknown]
  - Neuralgia [Unknown]
  - Nasal congestion [Unknown]
  - Mood altered [Unknown]

NARRATIVE: CASE EVENT DATE: 2016
